FAERS Safety Report 6392266-6 (Version None)
Quarter: 2009Q4

REPORT INFORMATION
  Report Type: 
  Country: None (occurrence: None)
  Receive Date: 20091005
  Receipt Date: 20090922
  Transmission Date: 20100525
  Serious: Yes (Other)
  Sender: FDA-Public Use
  Company Number: 2009AL006171

PATIENT
  Age: 36 Year
  Sex: Male

DRUGS (3)
  1. CARBAMAZEPINE [Suspect]
     Dosage: 1300 MG;QD
  2. PHENOBARBITAL TAB [Suspect]
     Indication: EPILEPSY
     Dosage: 100 MG;QD
  3. VALPROATE (VPA) [Concomitant]

REACTIONS (2)
  - DUPUYTREN'S CONTRACTURE [None]
  - FIBROMATOSIS [None]
